FAERS Safety Report 21673384 (Version 1)
Quarter: 2022Q4

REPORT INFORMATION
  Report Type: Spontaneous
  Country: CA (occurrence: CA)
  Receive Date: 20221202
  Receipt Date: 20221202
  Transmission Date: 20230113
  Serious: Yes (Other)
  Sender: FDA-Public Use
  Company Number: CA-JNJFOC-20190729121

PATIENT
  Sex: Female

DRUGS (16)
  1. FOSAMAX [Suspect]
     Active Substance: ALENDRONATE SODIUM
     Indication: Product used for unknown indication
     Dosage: DOSAGE INFORMATION: NOT REPORTED
     Route: 065
  2. REMICADE [Suspect]
     Active Substance: INFLIXIMAB
     Indication: Rheumatoid arthritis
     Dosage: DOSAGE INFORMATION: UNKNOWN
     Route: 042
  3. HYDROXYCHLOROQUINE SULFATE [Suspect]
     Active Substance: HYDROXYCHLOROQUINE SULFATE
     Indication: Product used for unknown indication
     Dosage: DOSAGE INFORMATION: UNKNOWN; DOSAGE FORM: UNKNOWN
     Route: 065
  4. HUMIRA [Suspect]
     Active Substance: ADALIMUMAB
     Indication: Product used for unknown indication
     Dosage: DOSAGE INFORMATION: UNKNOWN; DOSAGE FORM: SOLUTION SUBCUTANEOUS
     Route: 058
  5. ENBREL [Suspect]
     Active Substance: ETANERCEPT
     Indication: Product used for unknown indication
     Dosage: DOSAGE INFORMATION: UNKNOWN; DOSAGE FORM: UNKNOWN
     Route: 058
  6. ORENCIA [Suspect]
     Active Substance: ABATACEPT
     Indication: Product used for unknown indication
     Dosage: DOSAGE INFORMATION: UNKNOWN; DOSAGE FORM: UNKNOWN
     Route: 042
  7. METHOTREXATE [Suspect]
     Active Substance: METHOTREXATE
     Indication: Product used for unknown indication
     Dosage: DOSAGE INFORMATION: NOT REPORTED; DOSAGE FORM: NOT SPECIFIED
     Route: 065
  8. ACTEMRA [Suspect]
     Active Substance: TOCILIZUMAB
     Indication: Product used for unknown indication
     Dosage: DOSAGE INFORMATION: NOT REPORTED; DOSAGE FORM: NOT SPECIFIED
     Route: 065
  9. CETIRIZINE HYDROCHLORIDE [Suspect]
     Active Substance: CETIRIZINE HYDROCHLORIDE
     Indication: Product used for unknown indication
     Dosage: REPORTED: REACTINE/ CETIRIZINE HYDROCHLORIDE; DOSAGE INFORMATION: NOT REPORTED; DOSAGE FORM: NOT SPE
     Route: 065
  10. PHTHALYLSULFATHIAZOLE [Suspect]
     Active Substance: PHTHALYLSULFATHIAZOLE
     Indication: Product used for unknown indication
     Dosage: DOSAGE INFORMATION: NOT REPORTED; FORMULATION: UNKNOWN
     Route: 065
  11. ARAVA [Suspect]
     Active Substance: LEFLUNOMIDE
     Indication: Product used for unknown indication
     Dosage: DOSAGE INFORMATION: NOT REPORTED
     Route: 065
  12. CIMZIA [Suspect]
     Active Substance: CERTOLIZUMAB PEGOL
     Indication: Product used for unknown indication
     Dosage: SINGLE-USE PREFILLED SYRINGE; DOSAGE INFORMATION: NOT REPORTED
     Route: 058
  13. PREDNISONE [Suspect]
     Active Substance: PREDNISONE
     Indication: Product used for unknown indication
     Dosage: DOSAGE INFORMATION: NOT REPORTED; DOSAGE FORM: NOT SPECIFIED
     Route: 065
  14. FOLIC ACID [Suspect]
     Active Substance: FOLIC ACID
     Indication: Product used for unknown indication
     Dosage: DOSAGE INFORMATION: NOT REPORTED; DOSAGE FORM: NOT SPECIFIED
     Route: 065
  15. RITUXAN [Suspect]
     Active Substance: RITUXIMAB
     Indication: Product used for unknown indication
     Dosage: DOSAGE INFORMATION: NOT REPORTED; FORMULATION: SOLUTION
     Route: 042
  16. REMICADE [Suspect]
     Active Substance: INFLIXIMAB
     Indication: Rheumatoid arthritis
     Dosage: UNK, DOSAGE FORM: POWDER FOR SOLUTION INTRAVENOUS
     Route: 042

REACTIONS (7)
  - Alopecia [Unknown]
  - Pemphigus [Unknown]
  - Contraindicated product administered [Unknown]
  - Systemic lupus erythematosus [Unknown]
  - Pain [Unknown]
  - Rheumatoid arthritis [Unknown]
  - Abdominal discomfort [Unknown]
